FAERS Safety Report 16929243 (Version 6)
Quarter: 2021Q4

REPORT INFORMATION
  Report Type: Report from Study
  Country: GT (occurrence: GT)
  Receive Date: 20191017
  Receipt Date: 20211201
  Transmission Date: 20220303
  Serious: Yes (Other)
  Sender: FDA-Public Use
  Company Number: PHHY2019GT181865

PATIENT
  Age: 46 Year
  Sex: Female

DRUGS (2)
  1. GILENYA [Suspect]
     Active Substance: FINGOLIMOD HYDROCHLORIDE
     Indication: Multiple sclerosis
     Dosage: 0.5 MG, QD
     Route: 048
     Dates: start: 20181013
  2. GILENYA [Suspect]
     Active Substance: FINGOLIMOD HYDROCHLORIDE
     Dosage: 0.5 MG, QD
     Route: 048
     Dates: start: 20181015

REACTIONS (11)
  - Foot fracture [Unknown]
  - Ovarian cyst [Unknown]
  - Arthralgia [Unknown]
  - Back pain [Unknown]
  - Neck pain [Unknown]
  - Rash macular [Unknown]
  - Stress [Unknown]
  - Fall [Unknown]
  - Pain in extremity [Unknown]
  - Myalgia [Unknown]
  - Fatigue [Not Recovered/Not Resolved]

NARRATIVE: CASE EVENT DATE: 20200222
